FAERS Safety Report 12282792 (Version 1)
Quarter: 2016Q2

REPORT INFORMATION
  Report Type: Spontaneous
  Country: US (occurrence: US)
  Receive Date: 20160419
  Receipt Date: 20160419
  Transmission Date: 20160815
  Serious: Yes (Other)
  Sender: FDA-Public Use
  Company Number: 2015BOT00033

PATIENT
  Age: 76 Year
  Sex: Female

DRUGS (1)
  1. NEURO SUPPORT PLUS FOOT BALM [Suspect]
     Active Substance: CAMPHOR (SYNTHETIC)

REACTIONS (6)
  - Amnesia [Unknown]
  - Thinking abnormal [Unknown]
  - Peripheral swelling [Recovered/Resolved]
  - Erythema [None]
  - Blister [Recovered/Resolved]
  - Pain [Recovered/Resolved]
